FAERS Safety Report 4699342-4 (Version None)
Quarter: 2005Q2

REPORT INFORMATION
  Report Type: 
  Country: None (occurrence: None)
  Receive Date: 20050622
  Receipt Date: 20050609
  Transmission Date: 20051028
  Serious: Yes (Death)
  Sender: FDA-Public Use
  Company Number: 2005059698

PATIENT
  Age: 64 Year
  Sex: Female

DRUGS (10)
  1. PREDNISONE [Suspect]
     Indication: ILL-DEFINED DISORDER
     Dosage: 5 MG (5 MG, 1 IN 1 D), ORAL
     Route: 048
  2. AMOXICILLIN [Suspect]
     Indication: ILL-DEFINED DISORDER
  3. ALBUTEROL SULFATE HFA [Suspect]
     Indication: ILL-DEFINED DISORDER
     Dosage: 5 MG, INHALATION
     Route: 055
  4. SALBUTAMOL SULFATE (SALBUTAMOL SULFATE) [Suspect]
     Indication: ILL-DEFINED DISORDER
     Dosage: 1600 MCG (400 MCG, 4 IN 1 D)
  5. IBUPROFEN [Suspect]
     Indication: ILL-DEFINED DISORDER
     Dosage: 600 MG (200 MG, 3 IN 1 D), ORAL
     Route: 048
  6. ATROVENT [Suspect]
     Indication: CHRONIC OBSTRUCTIVE PULMONARY DISEASE
     Dosage: 2 M G, INHALATION
     Route: 055
  7. SALMETEROL (SALMETEROL) [Concomitant]
  8. FLUTICASONE PROPIONATE [Concomitant]
  9. PHYLLOCONTIN [Concomitant]
  10. OXYGEN (OXYGEN) [Concomitant]

REACTIONS (2)
  - BRONCHOPNEUMONIA [None]
  - EMPHYSEMA [None]
